FAERS Safety Report 17854868 (Version 6)
Quarter: 2020Q2

REPORT INFORMATION
  Report Type: Spontaneous
  Country: US (occurrence: US)
  Receive Date: 20200603
  Receipt Date: 20200615
  Transmission Date: 20200714
  Serious: No
  Sender: FDA-Public Use
  Company Number: US-PFIZER INC-2020215330

PATIENT
  Age: 72 Year
  Sex: Female
  Weight: 58.97 kg

DRUGS (4)
  1. PREMPRO [Suspect]
     Active Substance: ESTROGENS, CONJUGATED\MEDROXYPROGESTERONE ACETATE
     Indication: MENOPAUSE
     Dosage: UNK, 1X/DAY (0.45MG/1.5MG; HALF OF A TABLET, BY MOUTH, ONCE IN THE MORNING)
     Route: 048
     Dates: start: 2001
  2. OLMESARTAN MEDOXOMIL. [Concomitant]
     Active Substance: OLMESARTAN MEDOXOMIL
     Indication: HYPERTENSION
     Dosage: 20 MG, 1X/DAY (20MG, TABLET, BY MOUTH, ONCE A DAY)
     Route: 048
  3. PREMPRO [Suspect]
     Active Substance: ESTROGENS, CONJUGATED\MEDROXYPROGESTERONE ACETATE
     Dosage: 0.5 DF (1/2 TAB), DAILY
  4. ATORVASTATIN [Concomitant]
     Active Substance: ATORVASTATIN
     Indication: BLOOD CHOLESTEROL ABNORMAL
     Dosage: 20 MG, 1X/DAY [20MG, TABLET, BY MOUTH, ONCE DAILY]
     Route: 048

REACTIONS (5)
  - Depression [Unknown]
  - Emotional disorder [Unknown]
  - Off label use [Unknown]
  - Feeling abnormal [Unknown]
  - Therapeutic response unexpected [Unknown]
